FAERS Safety Report 4435145-3 (Version None)
Quarter: 2004Q3

REPORT INFORMATION
  Report Type: 
  Country: None (occurrence: None)
  Receive Date: 20040826
  Receipt Date: 20040826
  Transmission Date: 20050211
  Serious: Yes (Hospitalization)
  Sender: FDA-Public Use
  Company Number: None

PATIENT
  Age: 80 Year
  Sex: Male

DRUGS (1)
  1. REGULAR INSULIN [Suspect]
     Dosage: 6 UNITS AM , 3 MIDDAY, 4 PM

REACTIONS (1)
  - BLOOD GLUCOSE DECREASED [None]
